FAERS Safety Report 12892353 (Version 1)
Quarter: 2016Q4

REPORT INFORMATION
  Report Type: Spontaneous
  Country: US (occurrence: US)
  Receive Date: 20161028
  Receipt Date: 20161028
  Transmission Date: 20170207
  Serious: No
  Sender: FDA-Public Use
  Company Number: PHEH2016US027826

PATIENT
  Age: 75 Year
  Sex: Male

DRUGS (2)
  1. LENVATINIB [Suspect]
     Active Substance: LENVATINIB
     Indication: RENAL CELL CARCINOMA
     Dosage: 8 MG, QD (ONCE DAILY)
     Route: 048
     Dates: start: 20160623
  2. AFINITOR [Suspect]
     Active Substance: EVEROLIMUS
     Indication: RENAL CELL CARCINOMA
     Dosage: 5 MG, QOD (EVERY OTHER DAY)
     Route: 048

REACTIONS (3)
  - Disease progression [Unknown]
  - Ejection fraction decreased [Unknown]
  - Protein total decreased [Recovering/Resolving]

NARRATIVE: CASE EVENT DATE: 20161024
